FAERS Safety Report 5649049-1 (Version None)
Quarter: 2008Q1

REPORT INFORMATION
  Report Type: 
  Country: None (occurrence: None)
  Receive Date: 20080304
  Receipt Date: 20080225
  Transmission Date: 20080703
  Serious: Yes (Hospitalization)
  Sender: FDA-Public Use
  Company Number: US-ASTRAZENECA-2008UW03914

PATIENT
  Age: 40 Year
  Sex: Male

DRUGS (4)
  1. SEROQUEL [Suspect]
     Indication: BIPOLAR DISORDER
     Route: 048
     Dates: start: 20010101
  2. SEROQUEL [Suspect]
     Route: 048
  3. ABILIFY [Concomitant]
     Dates: start: 20060101
  4. EFFEXOR [Concomitant]

REACTIONS (4)
  - BEDRIDDEN [None]
  - FACE OEDEMA [None]
  - ILL-DEFINED DISORDER [None]
  - SWELLING [None]
